FAERS Safety Report 6698238-6 (Version None)
Quarter: 2010Q2

REPORT INFORMATION
  Report Type: 
  Country: None (occurrence: None)
  Receive Date: 20100427
  Receipt Date: 20100420
  Transmission Date: 20101027
  Serious: Yes (Death, Other)
  Sender: FDA-Public Use
  Company Number: JP-BRISTOL-MYERS SQUIBB COMPANY-15075351

PATIENT
  Age: 6 Decade
  Sex: Male

DRUGS (2)
  1. BRIPLATIN [Suspect]
     Indication: NEUROENDOCRINE CARCINOMA
  2. IRINOTECAN HCL [Suspect]
     Indication: NEUROENDOCRINE CARCINOMA

REACTIONS (3)
  - GASTROINTESTINAL NECROSIS [None]
  - MALAISE [None]
  - PNEUMATOSIS INTESTINALIS [None]
